FAERS Safety Report 10163909 (Version 2)
Quarter: 2014Q2

REPORT INFORMATION
  Report Type: Report from Study
  Country: CH (occurrence: CH)
  Receive Date: 20140510
  Receipt Date: 20140528
  Transmission Date: 20141212
  Serious: Yes (Hospitalization)
  Sender: FDA-Public Use
  Company Number: CH-ROCHE-1393931

PATIENT
  Age: 51 Year
  Sex: Female

DRUGS (11)
  1. PERTUZUMAB [Suspect]
     Indication: BREAST CANCER METASTATIC
     Dosage: LOADING DOSE
     Route: 042
     Dates: start: 20131126, end: 20131126
  2. PERTUZUMAB [Suspect]
     Dosage: MAINTENANCE DOSE?LAST DOSE PRIOR TO ADVERSE EVENT GIVEN ON 22/APR/2014
     Route: 042
  3. TRASTUZUMAB [Suspect]
     Indication: BREAST CANCER METASTATIC
     Dosage: LOADING DOSE.
     Route: 042
     Dates: start: 20131126, end: 20131126
  4. TRASTUZUMAB [Suspect]
     Dosage: MAINTENANCE DOSE.?LAST DOSE PRIOR TO ADVERSE EVENT GIVEN ON 22/APR/2014
     Route: 042
  5. XANAX [Concomitant]
     Route: 048
     Dates: start: 20131115
  6. NIFEDIPINE [Concomitant]
     Route: 048
     Dates: start: 20131115
  7. DAFALGAN [Concomitant]
     Route: 048
     Dates: start: 20131115
  8. RANITIDINE [Concomitant]
     Route: 048
     Dates: start: 20131115
  9. VENLAFAXINE [Concomitant]
     Route: 048
     Dates: start: 20131115
  10. NOVALGINE [Concomitant]
     Route: 048
     Dates: start: 20131115
  11. BILOL [Concomitant]
     Route: 048
     Dates: start: 20140422

REACTIONS (1)
  - Rectal haemorrhage [Recovered/Resolved]
